FAERS Safety Report 20741365 (Version 2)
Quarter: 2022Q2

REPORT INFORMATION
  Report Type: Spontaneous
  Country: US (occurrence: US)
  Receive Date: 20220422
  Receipt Date: 20220608
  Transmission Date: 20220721
  Serious: No
  Sender: FDA-Public Use
  Company Number: US-PFIZER INC-202101512303

PATIENT
  Age: 58 Year
  Sex: Male

DRUGS (2)
  1. INLYTA [Suspect]
     Active Substance: AXITINIB
     Dosage: 5 MG
     Dates: start: 20210901
  2. INLYTA [Suspect]
     Active Substance: AXITINIB
     Dosage: 5 MG
     Dates: start: 20211001

REACTIONS (8)
  - Product dose omission issue [Unknown]
  - Product dose omission in error [Unknown]
  - Pain in extremity [Unknown]
  - Diarrhoea [Unknown]
  - Dysphonia [Unknown]
  - Rhinorrhoea [Unknown]
  - Stomatitis [Unknown]
  - Fatigue [Unknown]
